FAERS Safety Report 20470937 (Version 1)
Quarter: 2022Q1

REPORT INFORMATION
  Report Type: Spontaneous
  Country: HN (occurrence: HN)
  Receive Date: 20220214
  Receipt Date: 20220214
  Transmission Date: 20220423
  Serious: Yes (Death, Hospitalization, Other)
  Sender: FDA-Public Use
  Company Number: HN-BRISTOL-MYERS SQUIBB COMPANY-BMS-2022-020571

PATIENT
  Age: 75 Year
  Sex: Female

DRUGS (1)
  1. SPRYCEL [Suspect]
     Active Substance: DASATINIB
     Indication: Chronic myeloid leukaemia
     Dosage: 100MG (2 X 50MG TABLETS)
     Route: 065

REACTIONS (4)
  - Thrombosis [Fatal]
  - Asthenia [Unknown]
  - COVID-19 [Unknown]
  - Vomiting [Unknown]

NARRATIVE: CASE EVENT DATE: 20220110
